FAERS Safety Report 24114195 (Version 1)
Quarter: 2024Q3

REPORT INFORMATION
  Report Type: Spontaneous
  Country: CA (occurrence: CA)
  Receive Date: 20240720
  Receipt Date: 20240720
  Transmission Date: 20241017
  Serious: Yes (Hospitalization, Other)
  Sender: CELLTRION
  Company Number: CA-PFIZER INC-202300361815

PATIENT

DRUGS (10)
  1. INFLECTRA [Suspect]
     Active Substance: INFLIXIMAB-DYYB
     Indication: Ankylosing spondylitis
     Dosage: 550 MG, W0, 2, 6 AND EVERY 8 WEEKS
     Route: 042
     Dates: start: 20221215
  2. INFLECTRA [Suspect]
     Active Substance: INFLIXIMAB-DYYB
     Dosage: 550 MG, W0, 2, 6 AND EVERY 8 WEEKS
     Route: 042
     Dates: start: 20231103
  3. INFLECTRA [Suspect]
     Active Substance: INFLIXIMAB-DYYB
     Dosage: 550 MG, W0, 2, 6 AND EVERY 8 WEEKS (DOSAGE ADMINISTERED. 550MG EVERY 8 WEEKS)
     Route: 042
     Dates: start: 20231229
  4. INFLECTRA [Suspect]
     Active Substance: INFLIXIMAB-DYYB
     Dosage: 550 MG, W0, 2, 6 AND Q8 WEEKS
     Route: 042
     Dates: start: 20240221
  5. INFLECTRA [Suspect]
     Active Substance: INFLIXIMAB-DYYB
     Dosage: 550 MG, W0, 2, 6 AND Q8 WEEKS EVERY 8 WEEKS (11 WEEKS AND 5 DAYS)
     Route: 042
     Dates: start: 20240320
  6. INFLECTRA [Suspect]
     Active Substance: INFLIXIMAB-DYYB
     Dosage: 550 MG, W0, 2, 6 AND Q8 WEEKS
     Route: 042
     Dates: start: 20240510
  7. INFLECTRA [Suspect]
     Active Substance: INFLIXIMAB-DYYB
     Dosage: 550 MG (AFTER 8 WEEKS AND 5 DAYS), W0, 2, 6 AND Q8 WEEKS
     Route: 042
     Dates: start: 20240710
  8. DICLOFENAC [Concomitant]
     Active Substance: DICLOFENAC
     Dosage: 1 DF
  9. PREDNISONE [Concomitant]
     Active Substance: PREDNISONE
     Dosage: 1 DF
  10. ROBAXACET [Concomitant]
     Active Substance: ACETAMINOPHEN\METHOCARBAMOL
     Dosage: 1 DF

REACTIONS (6)
  - Stillbirth [Recovered/Resolved]
  - Pyrexia [Recovering/Resolving]
  - Nasopharyngitis [Recovered/Resolved]
  - Influenza [Recovered/Resolved]
  - Off label use [Unknown]
  - Intentional product use issue [Unknown]

NARRATIVE: CASE EVENT DATE: 20231201
